FAERS Safety Report 23849914 (Version 2)
Quarter: 2024Q2

REPORT INFORMATION
  Report Type: Report from Study
  Country: US (occurrence: US)
  Receive Date: 20240513
  Receipt Date: 20240521
  Transmission Date: 20240715
  Serious: Yes (Death)
  Sender: FDA-Public Use
  Company Number: PVI-US-2024-001003

PATIENT

DRUGS (7)
  1. PEGCETACOPLAN [Suspect]
     Active Substance: PEGCETACOPLAN
     Indication: Dry age-related macular degeneration
     Dosage: ONCE BILATERALLY EVERY 28 DAYS
     Route: 031
     Dates: start: 20230607, end: 20231117
  2. ANASTROZOLE [Concomitant]
     Active Substance: ANASTROZOLE
  3. MYRBETRIQ [Concomitant]
     Active Substance: MIRABEGRON
  4. METOPROLOL TARTRATE [Concomitant]
     Active Substance: METOPROLOL TARTRATE
  5. HYDROCHLOROTHIAZIDE [Concomitant]
     Active Substance: HYDROCHLOROTHIAZIDE
  6. DOXYCYCLINE HYCLATE [Concomitant]
     Active Substance: DOXYCYCLINE HYCLATE
  7. LOSARTAN [Concomitant]
     Active Substance: LOSARTAN

REACTIONS (1)
  - Death [Fatal]

NARRATIVE: CASE EVENT DATE: 20231117
